FAERS Safety Report 8355060-2 (Version None)
Quarter: 2012Q2

REPORT INFORMATION
  Report Type: 
  Country: None (occurrence: None)
  Receive Date: 20120511
  Receipt Date: 20120501
  Transmission Date: 20120825
  Serious: Yes (Other)
  Sender: FDA-Public Use
  Company Number: CA-JNJFOC-20120502006

PATIENT
  Sex: Male
  Weight: 87 kg

DRUGS (5)
  1. REMICADE [Suspect]
     Indication: COLITIS ULCERATIVE
     Route: 042
     Dates: start: 20060101
  2. ASACOL [Concomitant]
     Dosage: 6 X DAILY
     Dates: start: 20050101
  3. BISOPROLOL FUMARATE [Concomitant]
     Dates: start: 20110101
  4. CRESTOR [Concomitant]
     Dates: start: 20080101
  5. ZOPICLONE [Concomitant]
     Dates: start: 20110101

REACTIONS (2)
  - CHOLELITHIASIS [None]
  - BASAL CELL CARCINOMA [None]
